FAERS Safety Report 24681977 (Version 4)
Quarter: 2024Q4

REPORT INFORMATION
  Report Type: Report from Study
  Country: PT (occurrence: PT)
  Receive Date: 20241130
  Receipt Date: 20241219
  Transmission Date: 20250115
  Serious: Yes (Other)
  Sender: ABBVIE
  Company Number: PT-ABBVIE-6026255

PATIENT
  Age: 71 Year
  Sex: Male

DRUGS (5)
  1. CARBIDOPA\LEVODOPA [Suspect]
     Active Substance: CARBIDOPA\LEVODOPA
     Indication: Parkinson^s disease
     Dosage: 240 MG + 12 MG , LOAD0.6;BAS0.34;HIGH0.38;LOW0.26;EXT0.15
     Route: 058
     Dates: start: 20241126, end: 20241127
  2. CARBIDOPA\LEVODOPA [Suspect]
     Active Substance: CARBIDOPA\LEVODOPA
     Dosage: 240 MG + 12 MG, BASE0.33;HIGH0.4;LOW0.26;EXTRA0.2, LAST ADMIN DATE: NOV 2024
     Route: 058
     Dates: start: 20241118
  3. CARBIDOPA\LEVODOPA [Suspect]
     Active Substance: CARBIDOPA\LEVODOPA
     Dosage: 240 MG + 12 MG, LOAD0.6;BAS0.36;HIGH0.4;LOW0.26;EXT0.15
     Route: 058
     Dates: start: 202411, end: 20241126
  4. CARBIDOPA\LEVODOPA [Suspect]
     Active Substance: CARBIDOPA\LEVODOPA
     Dosage: 240 MG + 12 MG, LOAD0.6;BAS0.34;HIGH0.38;LOW0.26;EXT0.15
     Route: 058
     Dates: start: 20241128, end: 20241207
  5. CARBIDOPA\LEVODOPA [Suspect]
     Active Substance: CARBIDOPA\LEVODOPA
     Dosage: 240 MG + 12 MG, LOAD0.2;BAS0.29;HIGH0.31;LOW0.26;EXT0.15
     Route: 058
     Dates: start: 20241207

REACTIONS (3)
  - Loss of personal independence in daily activities [Recovered/Resolved]
  - Confusional state [Recovered/Resolved]
  - Urinary incontinence [Recovered/Resolved]

NARRATIVE: CASE EVENT DATE: 20241127
